FAERS Safety Report 4916454-8 (Version None)
Quarter: 2006Q1

REPORT INFORMATION
  Report Type: 
  Country: None (occurrence: None)
  Receive Date: 20060214
  Receipt Date: 20060127
  Transmission Date: 20060701
  Serious: Yes (Other)
  Sender: FDA-Public Use
  Company Number: 2006-0009174

PATIENT
  Age: 30 Year
  Sex: Female

DRUGS (3)
  1. VIREAD [Suspect]
     Indication: HIV INFECTION
  2. 3TC (LAMIVUDINE) [Suspect]
     Indication: HIV INFECTION
  3. EFAVIRENZ [Suspect]
     Indication: HIV INFECTION

REACTIONS (5)
  - CONDITION AGGRAVATED [None]
  - GRANULOMA [None]
  - IMMUNE RECONSTITUTION SYNDROME [None]
  - PERITONITIS [None]
  - TUBERCULOSIS [None]
